FAERS Safety Report 9973722 (Version 1)
Quarter: 2014Q1

REPORT INFORMATION
  Report Type: Spontaneous
  Country: US (occurrence: None)
  Receive Date: 20140214
  Receipt Date: 20140214
  Transmission Date: 20141002
  Serious: Yes (Other)
  Sender: FDA-Public Use
  Company Number: US-013448

PATIENT
  Age: 63 Year
  Sex: Male

DRUGS (3)
  1. PICO-SALAX [Suspect]
     Indication: BOWEL PREPARATION
     Dosage: (1ST DOSE AT 1530)
     Dates: start: 20131024
  2. ZOCOR [Concomitant]
  3. COZAAR [Concomitant]

REACTIONS (1)
  - Treatment noncompliance [None]
